FAERS Safety Report 6972617-1 (Version None)
Quarter: 2010Q3

REPORT INFORMATION
  Report Type: 
  Country: None (occurrence: None)
  Receive Date: 20100909
  Receipt Date: 20100902
  Transmission Date: 20110219
  Serious: Yes (Other)
  Sender: FDA-Public Use
  Company Number: JP-PFIZER INC-2010111163

PATIENT
  Sex: Male

DRUGS (1)
  1. MEDROL [Suspect]
     Indication: BEHCET'S SYNDROME
     Dosage: 8 MG, 1X/DAY

REACTIONS (2)
  - ALOPECIA [None]
  - CUSHINGOID [None]
